FAERS Safety Report 5195506-4 (Version None)
Quarter: 2006Q4

REPORT INFORMATION
  Report Type: 
  Country: None (occurrence: None)
  Receive Date: 20061222
  Receipt Date: 20061222
  Transmission Date: 20070319
  Serious: Yes (Hospitalization)
  Sender: FDA-Public Use
  Company Number: None

PATIENT
  Sex: Male

DRUGS (5)
  1. GEMCITABINE [Suspect]
     Indication: COLON CANCER
     Dosage: 1000MG/M2   DAY 1   IV
     Route: 042
     Dates: start: 20060216
  2. OXALIPLATIN [Suspect]
     Indication: COLON CANCER
     Dosage: 100MG/M2  DAY 2   IV
     Route: 042
     Dates: start: 20060217
  3. COUMADIN [Concomitant]
  4. MORPHINE [Concomitant]
  5. PERCOCET [Concomitant]

REACTIONS (2)
  - ARTHRALGIA [None]
  - DEEP VEIN THROMBOSIS [None]
